FAERS Safety Report 14012518 (Version 2)
Quarter: 2017Q4

REPORT INFORMATION
  Report Type: Spontaneous
  Country: EG (occurrence: EG)
  Receive Date: 20170926
  Receipt Date: 20171011
  Transmission Date: 20180321
  Serious: Yes (Death)
  Sender: FDA-Public Use
  Company Number: EG-ROCHE-1998917

PATIENT
  Age: 40 Year
  Sex: Female
  Weight: 75 kg

DRUGS (2)
  1. ACTILYSE [Suspect]
     Active Substance: ALTEPLASE
     Indication: HEMIPARESIS
     Route: 040
     Dates: start: 20170902, end: 20170902
  2. ACTILYSE [Suspect]
     Active Substance: ALTEPLASE
     Indication: ISCHAEMIC STROKE
     Route: 042
     Dates: start: 20170902, end: 20170902

REACTIONS (8)
  - Bradycardia [Fatal]
  - Oxygen saturation decreased [Fatal]
  - Respiratory failure [Fatal]
  - Loss of consciousness [Fatal]
  - Generalised tonic-clonic seizure [Fatal]
  - Chest X-ray abnormal [Fatal]
  - Haemothorax [Fatal]
  - Status epilepticus [Fatal]

NARRATIVE: CASE EVENT DATE: 20170902
